FAERS Safety Report 7909875-2 (Version None)
Quarter: 2011Q4

REPORT INFORMATION
  Report Type: 
  Country: None (occurrence: None)
  Receive Date: 20111111
  Receipt Date: 20111107
  Transmission Date: 20120403
  Serious: Yes (Other)
  Sender: FDA-Public Use
  Company Number: US-CELGENEUS-163-21880-11111093

PATIENT
  Sex: Male
  Weight: 93.524 kg

DRUGS (16)
  1. UROXATRAL [Concomitant]
     Route: 065
  2. DECADRON [Concomitant]
     Route: 065
  3. IRON [Concomitant]
     Route: 065
  4. METOPROLOL [Concomitant]
     Route: 065
  5. REVLIMID [Suspect]
     Indication: MULTIPLE MYELOMA
     Dosage: 25 MILLIGRAM
     Route: 048
     Dates: start: 20081215
  6. WARFARIN SODIUM [Concomitant]
     Route: 065
  7. AVODART [Concomitant]
     Route: 065
  8. MILK THISTLE [Concomitant]
     Route: 065
  9. POTASSIUM [Concomitant]
     Route: 065
  10. NEXIUM [Concomitant]
     Route: 065
  11. COQ10 [Concomitant]
     Route: 065
  12. ASPIRIN [Concomitant]
     Route: 065
  13. GLUCO/CHON [Concomitant]
     Route: 065
  14. CAT'S CLAW [Concomitant]
     Route: 065
  15. MULTI [Concomitant]
     Route: 065
  16. VITAMIN B-12 [Concomitant]
     Route: 065

REACTIONS (5)
  - GINGIVAL BLEEDING [None]
  - FATIGUE [None]
  - NAUSEA [None]
  - ANAEMIA [None]
  - ABDOMINAL DISCOMFORT [None]
